FAERS Safety Report 17035410 (Version 1)
Quarter: 2019Q4

REPORT INFORMATION
  Report Type: Spontaneous
  Country: US (occurrence: US)
  Receive Date: 20191114
  Receipt Date: 20191114
  Transmission Date: 20200122
  Serious: No
  Sender: FDA-Public Use
  Company Number: None

PATIENT
  Age: 45 Year
  Sex: Male
  Weight: 85 kg

DRUGS (2)
  1. OXETOL [Suspect]
     Active Substance: OXCARBAZEPINE
     Dates: start: 20191102, end: 20191114
  2. OXETOL [Suspect]
     Active Substance: OXCARBAZEPINE
     Indication: EPILEPSY
     Route: 048

REACTIONS (4)
  - Palpitations [None]
  - Rash [None]
  - Fatigue [None]
  - Dizziness [None]

NARRATIVE: CASE EVENT DATE: 20191113
